FAERS Safety Report 12133900 (Version 22)
Quarter: 2018Q3

REPORT INFORMATION
  Report Type: Report from Study
  Country: CA (occurrence: CA)
  Receive Date: 20160301
  Receipt Date: 20180927
  Transmission Date: 20181010
  Serious: Yes (Other)
  Sender: FDA-Public Use
  Company Number: CA-ROCHE-1474767

PATIENT
  Age: 49 Year
  Sex: Male
  Weight: 72 kg

DRUGS (8)
  1. PLAQUENIL [Concomitant]
     Active Substance: HYDROXYCHLOROQUINE SULFATE
     Route: 065
  2. PREDNISONE. [Concomitant]
     Active Substance: PREDNISONE
     Route: 065
  3. ACTEMRA [Suspect]
     Active Substance: TOCILIZUMAB
     Route: 042
     Dates: start: 20170425
  4. AZATHIOPRINE. [Concomitant]
     Active Substance: AZATHIOPRINE
     Route: 065
  5. ACTEMRA [Suspect]
     Active Substance: TOCILIZUMAB
     Indication: RHEUMATOID ARTHRITIS
     Route: 042
     Dates: start: 20140912
  6. ACTEMRA [Suspect]
     Active Substance: TOCILIZUMAB
     Dosage: INFUSION #32
     Route: 042
     Dates: start: 20170817
  7. RAMIPRIL. [Concomitant]
     Active Substance: RAMIPRIL
     Route: 065
  8. LOSEC [Concomitant]
     Active Substance: OMEPRAZOLE
     Route: 065

REACTIONS (53)
  - Skin irritation [Not Recovered/Not Resolved]
  - Hypoaesthesia [Recovered/Resolved]
  - Increased tendency to bruise [Recovering/Resolving]
  - Blister [Not Recovered/Not Resolved]
  - Blood pressure diastolic increased [Unknown]
  - Cough [Recovering/Resolving]
  - Rhinorrhoea [Recovering/Resolving]
  - Body temperature decreased [Unknown]
  - Skin abrasion [Unknown]
  - Infusion related reaction [Unknown]
  - Lower respiratory tract infection [Recovering/Resolving]
  - Oral herpes [Unknown]
  - Weight decreased [Unknown]
  - Heart rate increased [Unknown]
  - Arthralgia [Not Recovered/Not Resolved]
  - Blood pressure increased [Unknown]
  - Fatigue [Not Recovered/Not Resolved]
  - Musculoskeletal stiffness [Not Recovered/Not Resolved]
  - Increased bronchial secretion [Not Recovered/Not Resolved]
  - Arthralgia [Unknown]
  - Tooth disorder [Unknown]
  - Muscle strain [Recovering/Resolving]
  - Blood pressure diastolic increased [Unknown]
  - Blood blister [Not Recovered/Not Resolved]
  - Device breakage [Recovered/Resolved]
  - Muscle spasms [Not Recovered/Not Resolved]
  - Rhinorrhoea [Not Recovered/Not Resolved]
  - Foot deformity [Unknown]
  - Paraesthesia [Recovered/Resolved]
  - Post procedural complication [Recovered/Resolved]
  - Weight increased [Recovering/Resolving]
  - Tooth fracture [Unknown]
  - Nasopharyngitis [Unknown]
  - Impaired healing [Unknown]
  - Ill-defined disorder [Unknown]
  - Cartilage injury [Unknown]
  - Contusion [Recovered/Resolved]
  - Tooth infection [Not Recovered/Not Resolved]
  - Myalgia [Not Recovered/Not Resolved]
  - Herpes zoster [Not Recovered/Not Resolved]
  - Rash [Not Recovered/Not Resolved]
  - Localised infection [Unknown]
  - Fall [Unknown]
  - Contusion [Unknown]
  - Joint swelling [Recovered/Resolved]
  - Burning sensation [Not Recovered/Not Resolved]
  - Lower respiratory tract infection [Not Recovered/Not Resolved]
  - Asthenia [Not Recovered/Not Resolved]
  - Abdominal pain upper [Unknown]
  - Flatulence [Unknown]
  - Oxygen saturation decreased [Unknown]
  - Nasopharyngitis [Not Recovered/Not Resolved]
  - Skin ulcer [Unknown]

NARRATIVE: CASE EVENT DATE: 20141010
